FAERS Safety Report 9200448 (Version 2)
Quarter: 2013Q2

REPORT INFORMATION
  Report Type: Report from Study
  Country: AR (occurrence: AR)
  Receive Date: 20130329
  Receipt Date: 20130419
  Transmission Date: 20140414
  Serious: Yes (Hospitalization, Other)
  Sender: FDA-Public Use
  Company Number: AR-ABBOTT-13P-007-1066785-00

PATIENT
  Age: 51 Year
  Sex: Female

DRUGS (4)
  1. HUMIRA [Suspect]
     Indication: RHEUMATOID ARTHRITIS
     Route: 058
     Dates: start: 20110401, end: 20130204
  2. CORTICOIDS [Concomitant]
     Indication: PRODUCT USED FOR UNKNOWN INDICATION
  3. METHOTREXATO [Concomitant]
     Indication: PRODUCT USED FOR UNKNOWN INDICATION
  4. FOLIC ACID [Concomitant]
     Indication: PRODUCT USED FOR UNKNOWN INDICATION

REACTIONS (8)
  - Cardiomegaly [Recovering/Resolving]
  - Pneumonia [Recovering/Resolving]
  - Leukopenia [Recovering/Resolving]
  - Pericarditis [Recovering/Resolving]
  - Pleural effusion [Recovering/Resolving]
  - Pyrexia [Recovering/Resolving]
  - Constipation [Recovering/Resolving]
  - Asthenia [Recovering/Resolving]
